FAERS Safety Report 11718195 (Version 1)
Quarter: 2015Q4

REPORT INFORMATION
  Report Type: Spontaneous
  Country: FR (occurrence: FR)
  Receive Date: 20151110
  Receipt Date: 20151110
  Transmission Date: 20160304
  Serious: Yes (Death)
  Sender: FDA-Public Use
  Company Number: FR-JNJFOC-20151106240

PATIENT
  Age: 82 Year
  Sex: Male

DRUGS (16)
  1. ROCEPHINE [Suspect]
     Active Substance: CEFTRIAXONE SODIUM
     Indication: LUNG INFECTION
     Route: 042
     Dates: start: 20150410, end: 20150416
  2. SERETIDE [Concomitant]
     Active Substance: FLUTICASONE FUROATE\SALMETEROL XINAFOATE
     Route: 055
     Dates: start: 20150423, end: 20150426
  3. PERFALGAN [Concomitant]
     Active Substance: ACETAMINOPHEN
     Route: 042
     Dates: start: 20150423, end: 20150423
  4. DISCOTRINE [Concomitant]
     Active Substance: NITROGLYCERIN
     Route: 062
     Dates: end: 20150426
  5. PARACETAMOL [Concomitant]
     Active Substance: ACETAMINOPHEN
     Route: 065
     Dates: start: 20150423, end: 20150425
  6. RISPERDAL [Suspect]
     Active Substance: RISPERIDONE
     Indication: PRODUCT USED FOR UNKNOWN INDICATION
     Dosage: 0.5 DOSE AS NECESSARY FOR 1 MONTH
     Route: 048
     Dates: start: 201503, end: 20150423
  7. PERMIXON [Concomitant]
     Active Substance: SAW PALMETTO
     Route: 048
     Dates: end: 20150424
  8. KARDEGIC [Concomitant]
     Active Substance: ASPIRIN LYSINE
     Route: 048
     Dates: end: 20150424
  9. JOSAMYCIN [Suspect]
     Active Substance: JOSAMYCIN
     Indication: LUNG INFECTION
     Route: 048
     Dates: start: 20150417, end: 20150423
  10. AMIKACIN [Suspect]
     Active Substance: AMIKACIN
     Indication: LUNG INFECTION
     Route: 042
     Dates: start: 20150410, end: 20150416
  11. LEVOTHYROX [Concomitant]
     Active Substance: LEVOTHYROXINE
     Route: 048
     Dates: end: 20150425
  12. STILNOX [Concomitant]
     Active Substance: ZOLPIDEM TARTRATE
     Route: 048
     Dates: end: 20150423
  13. FLUINDIONE [Concomitant]
     Active Substance: FLUINDIONE
     Dosage: STRENGTH = 20 MG
     Route: 048
     Dates: end: 20150425
  14. INNOVAIR [Concomitant]
     Active Substance: BECLOMETHASONE DIPROPIONATE\FORMOTEROL
     Dosage: 100 MCG/ 6MCG PER DOSE
     Route: 055
     Dates: end: 20150423
  15. DEROXAT [Suspect]
     Active Substance: PAROXETINE HYDROCHLORIDE
     Indication: PRODUCT USED FOR UNKNOWN INDICATION
     Dosage: DURATION: 1 MONTH
     Route: 048
     Dates: start: 201503, end: 20150423
  16. SERESTA [Suspect]
     Active Substance: OXAZEPAM
     Indication: PRODUCT USED FOR UNKNOWN INDICATION
     Dosage: DURATION 1 MONTH
     Route: 048
     Dates: start: 201503, end: 20150423

REACTIONS (2)
  - Hepatocellular injury [Fatal]
  - Encephalopathy [Fatal]

NARRATIVE: CASE EVENT DATE: 20150423
